FAERS Safety Report 5150097-9 (Version None)
Quarter: 2006Q4

REPORT INFORMATION
  Report Type: 
  Country: None (occurrence: None)
  Receive Date: 20061113
  Receipt Date: 20061031
  Transmission Date: 20070319
  Serious: Yes (Hospitalization, Other)
  Sender: FDA-Public Use
  Company Number: FR-ABBOTT-06P-056-0348821-00

PATIENT
  Sex: Female

DRUGS (7)
  1. DEPAKENE [Suspect]
     Indication: JEALOUS DELUSION
     Route: 048
     Dates: end: 20060205
  2. VENLAFAXINE HYDROCHLORIDE [Suspect]
     Indication: JEALOUS DELUSION
     Route: 048
  3. RISPERIDONE [Suspect]
     Indication: JEALOUS DELUSION
     Route: 048
  4. DIAZEPAM [Suspect]
     Indication: JEALOUS DELUSION
     Dosage: 5MG ON THE MORNING AND MIDDAY AND 10MG ON THE EVENING AND AT THE BEDTIME
     Route: 048
  5. HALOPERIDOL [Suspect]
     Indication: JEALOUS DELUSION
     Route: 048
     Dates: start: 20060613
  6. HALOPERIDOL [Suspect]
     Route: 048
  7. HALOPERIDOL [Suspect]
     Route: 048

REACTIONS (3)
  - DELIRIUM [None]
  - DIABETES MELLITUS [None]
  - PREMATURE LABOUR [None]
